FAERS Safety Report 20299487 (Version 1)
Quarter: 2022Q1

REPORT INFORMATION
  Report Type: Spontaneous
  Country: NL (occurrence: NL)
  Receive Date: 20220105
  Receipt Date: 20220105
  Transmission Date: 20220423
  Serious: No
  Sender: FDA-Public Use
  Company Number: NL-LUPIN PHARMACEUTICALS INC.-2021-26213

PATIENT
  Age: 30 Year
  Sex: Female

DRUGS (18)
  1. LEVOTHYROXINE [Suspect]
     Active Substance: LEVOTHYROXINE
     Indication: Hypopituitarism
     Dosage: 100 MICROGRAM, QD
     Route: 065
  2. LEVOTHYROXINE [Suspect]
     Active Substance: LEVOTHYROXINE
     Dosage: 200 MICROGRAM, QD
     Route: 065
  3. MISOPROSTOL [Suspect]
     Active Substance: MISOPROSTOL
     Indication: Labour induction
     Dosage: UNK
     Route: 065
  4. HYDROCORTISONE [Suspect]
     Active Substance: HYDROCORTISONE
     Indication: Hormone replacement therapy
     Dosage: 50 MILLIGRAM
     Route: 040
  5. HYDROCORTISONE [Suspect]
     Active Substance: HYDROCORTISONE
     Indication: Hypopituitarism
     Dosage: 100 MILLIGRAM
     Route: 040
  6. HYDROCORTISONE [Suspect]
     Active Substance: HYDROCORTISONE
     Dosage: 200 MILLIGRAM,OVER 24 HOURS
     Route: 042
  7. HYDROCORTISONE [Suspect]
     Active Substance: HYDROCORTISONE
     Dosage: 20 MILLIGRAM, QD
     Route: 065
  8. HYDROCORTISONE [Suspect]
     Active Substance: HYDROCORTISONE
     Dosage: 30 MILLIGRAM
     Route: 065
  9. FOLLITROPIN\LUTEINIZING HORMONE [Suspect]
     Active Substance: FOLLITROPIN\LUTEINIZING HORMONE
     Indication: Ovulation induction
     Dosage: 150 INTERNATIONAL UNIT, QD
     Route: 065
  10. HUMAN CHORIONIC GONADOTROPIN [Suspect]
     Active Substance: GONADOTROPHIN, CHORIONIC
     Indication: Ovulation induction
     Dosage: 250 MICROGRAM
     Route: 065
  11. PRASTERONE [Suspect]
     Active Substance: PRASTERONE
     Indication: Hypopituitarism
     Dosage: 50 MILLIGRAM, QD
     Route: 065
  12. DYDROGESTERONE\ESTRADIOL [Suspect]
     Active Substance: DYDROGESTERONE\ESTRADIOL
     Indication: Hypopituitarism
     Dosage: UNK,FOR 14 DAYS OF EACH 28-DAY CYCLE, STRENGTH: 10 MG DYDROGESTERONE AND 2 MG ESTRADIOL
     Route: 065
  13. DESMOPRESSIN [Suspect]
     Active Substance: DESMOPRESSIN
     Indication: Hypopituitarism
     Dosage: 0.05 MILLIGRAM, QD
     Route: 065
  14. PROGESTERONE [Suspect]
     Active Substance: PROGESTERONE
     Indication: Product used for unknown indication
     Dosage: 200 MILLIGRAM, TID,THREE TIMES A DAY
     Route: 065
  15. OXYTOCIN [Suspect]
     Active Substance: OXYTOCIN
     Indication: Haemorrhage in pregnancy
     Dosage: 5 INTERNATIONAL UNIT
     Route: 040
  16. OXYTOCIN [Suspect]
     Active Substance: OXYTOCIN
     Dosage: 10 INTERNATIONAL UNIT,OVER FOUR HOURS
     Route: 042
  17. SOMATROPIN [Suspect]
     Active Substance: SOMATROPIN
     Indication: Hypopituitarism
     Dosage: 0.54 MILLIGRAM, QD
     Route: 065
  18. PRASTERONE [Suspect]
     Active Substance: PRASTERONE
     Indication: Hypopituitarism
     Dosage: 50 MILLIGRAM, QD
     Route: 065

REACTIONS (3)
  - Exposure during pregnancy [Unknown]
  - Normal newborn [Unknown]
  - Maternal exposure during delivery [Unknown]
